FAERS Safety Report 7813234-0 (Version None)
Quarter: 2011Q4

REPORT INFORMATION
  Report Type: 
  Country: None (occurrence: None)
  Receive Date: 20111013
  Receipt Date: 20110930
  Transmission Date: 20120403
  Serious: Yes (Hospitalization)
  Sender: FDA-Public Use
  Company Number: US-BAYER-2010-003346

PATIENT
  Age: 19 Year
  Sex: Female
  Weight: 77 kg

DRUGS (16)
  1. DROSPIRENONE AND ETHINYL ESTRADIOL [Suspect]
     Indication: CONTRACEPTION
     Dosage: UNK
     Dates: start: 20080701, end: 20100401
  2. DROSPIRENONE AND ETHINYL ESTRADIOL [Suspect]
     Indication: MENSTRUATION IRREGULAR
     Dosage: UNK
     Dates: start: 20080701, end: 20100401
  3. DROSPIRENONE AND ETHINYL ESTRADIOL [Suspect]
     Dosage: UNK
     Dates: start: 20080701, end: 20100401
  4. YASMIN [Suspect]
     Indication: CONTRACEPTION
     Dosage: UNK
     Dates: start: 20060601, end: 20080701
  5. YASMIN [Suspect]
     Indication: ACNE
     Dosage: UNK
     Dates: start: 20060601, end: 20080701
  6. DROSPIRENONE AND ETHINYL ESTRADIOL [Suspect]
     Indication: ACNE
     Dosage: UNK
     Dates: start: 20080701, end: 20100401
  7. EFFEXOR [Concomitant]
     Indication: BIPOLAR DISORDER
     Dosage: 37.5 MG, UNK
     Route: 048
     Dates: start: 20060403
  8. DICYCLOMINE [Concomitant]
     Dosage: 20 MG, UNK
     Dates: start: 20061029
  9. YASMIN [Suspect]
     Dosage: UNK
     Dates: start: 20060601, end: 20080701
  10. DROSPIRENONE AND ETHINYL ESTRADIOL [Suspect]
     Indication: ALOPECIA
     Dosage: UNK
     Dates: start: 20080701, end: 20100401
  11. PROTONIX [Concomitant]
     Dosage: 40 MG, UNK
     Dates: start: 20061029
  12. TRILEPTAL [Concomitant]
     Indication: BIPOLAR DISORDER
     Dosage: 150 MG, UNK
     Route: 048
     Dates: start: 20060106
  13. YASMIN [Suspect]
     Indication: MENSTRUATION IRREGULAR
     Dosage: UNK
     Dates: start: 20060601, end: 20080701
  14. MOTRIN [Concomitant]
     Dosage: UNK UNK, PRN
     Route: 048
  15. GLUCOPHAGE [Concomitant]
     Indication: DIABETES MELLITUS
     Route: 048
  16. YASMIN [Suspect]
     Indication: ALOPECIA
     Dosage: UNK
     Dates: start: 20060601, end: 20080701

REACTIONS (3)
  - CHOLELITHIASIS [None]
  - CHOLECYSTITIS CHRONIC [None]
  - PAIN [None]
